FAERS Safety Report 17756468 (Version 1)
Quarter: 2020Q2

REPORT INFORMATION
  Report Type: Spontaneous
  Country: FR (occurrence: FR)
  Receive Date: 20200507
  Receipt Date: 20200507
  Transmission Date: 20200714
  Serious: Yes (Death, Hospitalization, Other)
  Sender: FDA-Public Use
  Company Number: FR-CADILA HEALTHCARE LIMITED-FR-ZYDUS-025641

PATIENT

DRUGS (8)
  1. ACICLOVIR [Suspect]
     Active Substance: ACYCLOVIR
     Indication: ORAL HERPES
     Dosage: UNK
     Route: 065
  2. ZANAMIVIR [Suspect]
     Active Substance: ZANAMIVIR
     Indication: H1N1 INFLUENZA
     Dosage: 600 MILLIGRAM,600 MG, BID,(INTERVAL :1 DAYS)
     Route: 042
     Dates: start: 20171230, end: 20180103
  3. PANTOPRAZOLE [Suspect]
     Active Substance: PANTOPRAZOLE
     Indication: PROPHYLAXIS
     Dosage: UNK
     Route: 065
  4. PROPOFOL. [Suspect]
     Active Substance: PROPOFOL
     Indication: SEDATION
     Dosage: UNK
     Route: 065
  5. MEROPENEM. [Concomitant]
     Active Substance: MEROPENEM
     Indication: PRODUCT USED FOR UNKNOWN INDICATION
     Dosage: UNK
     Route: 065
  6. LINEZOLIDE [Concomitant]
     Active Substance: LINEZOLID
     Indication: PRODUCT USED FOR UNKNOWN INDICATION
     Dosage: UNK
     Route: 065
  7. KETAMIN [Suspect]
     Active Substance: KETAMINE
     Indication: SEDATION
     Dosage: UNK
     Route: 065
  8. OSELTAMIVIR [Concomitant]
     Active Substance: OSELTAMIVIR
     Indication: PRODUCT USED FOR UNKNOWN INDICATION
     Dosage: 75 MILLIGRAM,75 MG, BID,(INTERVAL :1 DAYS)
     Route: 048
     Dates: start: 201712

REACTIONS (3)
  - Hepatic failure [Fatal]
  - Cerebrovascular accident [Fatal]
  - Cholestasis [Fatal]

NARRATIVE: CASE EVENT DATE: 20180101
